FAERS Safety Report 6831222-8 (Version None)
Quarter: 2010Q3

REPORT INFORMATION
  Report Type: 
  Country: None (occurrence: None)
  Receive Date: 20100712
  Receipt Date: 20100702
  Transmission Date: 20110219
  Serious: Yes (Life-Threatening, Hospitalization, Other)
  Sender: FDA-Public Use
  Company Number: DE-JNJFOC-20060802061

PATIENT
  Age: 40 Year
  Sex: Male

DRUGS (5)
  1. RISPERIDONE [Suspect]
     Indication: SCHIZOPHRENIA
     Route: 065
  2. RISPERIDONE [Suspect]
     Route: 065
  3. MIRTAZAPINE [Suspect]
     Indication: MAJOR DEPRESSION
     Route: 065
  4. MIRTAZAPINE [Suspect]
     Route: 065
  5. BIPERIDEN HYDROCHLORIDE TAB [Concomitant]
     Indication: HYPOKINESIA
     Route: 065

REACTIONS (4)
  - HYPOKINESIA [None]
  - MAJOR DEPRESSION [None]
  - PULMONARY EMBOLISM [None]
  - RHABDOMYOLYSIS [None]
